FAERS Safety Report 8108932-8 (Version None)
Quarter: 2012Q1

REPORT INFORMATION
  Report Type: 
  Country: None (occurrence: None)
  Receive Date: 20120202
  Receipt Date: 20120126
  Transmission Date: 20120608
  Serious: Yes (Other)
  Sender: FDA-Public Use
  Company Number: NL-GLAXOSMITHKLINE-B0778034A

PATIENT
  Sex: Female
  Weight: 68 kg

DRUGS (4)
  1. HYDROCHLOROTHIAZIDE [Concomitant]
     Indication: PRODUCT USED FOR UNKNOWN INDICATION
     Dosage: 12.5MG PER DAY
     Route: 048
     Dates: start: 20080101
  2. RABEPRAZOLE SODIUM [Concomitant]
     Indication: PRODUCT USED FOR UNKNOWN INDICATION
     Dosage: 10MG PER DAY
     Route: 048
     Dates: start: 20050601
  3. VENTOLIN [Suspect]
     Indication: ASTHMA
     Dosage: 100MCG FOUR TIMES PER DAY
     Route: 055
     Dates: start: 20100301
  4. SYMBICORT [Suspect]
     Indication: ASTHMA
     Route: 055
     Dates: start: 20000130, end: 20120109

REACTIONS (4)
  - VENTRICULAR TACHYCARDIA [None]
  - SUPRAVENTRICULAR EXTRASYSTOLES [None]
  - ARRHYTHMIA [None]
  - VENTRICULAR EXTRASYSTOLES [None]
